FAERS Safety Report 10089350 (Version 1)
Quarter: 2014Q2

REPORT INFORMATION
  Report Type: Spontaneous
  Country: US (occurrence: None)
  Receive Date: 20140418
  Receipt Date: 20140418
  Transmission Date: 20141212
  Serious: Yes (Death)
  Sender: FDA-Public Use
  Company Number: None

PATIENT
  Age: 50 Year
  Sex: Male
  Weight: 78.93 kg

DRUGS (11)
  1. BLEOMYCIN [Suspect]
     Indication: TESTIS CANCER
     Dosage: 30 UNITS WEEKLY INTRAVENOUS
     Route: 042
     Dates: start: 20131203, end: 20140128
  2. LORAZEPAM [Concomitant]
  3. FOSAPREPITANT [Concomitant]
  4. ONDANSETRON AND DEXAMETHASONE [Concomitant]
  5. ACETAMINOPHEN [Concomitant]
  6. MANNITOL [Concomitant]
  7. CISPLATIN [Concomitant]
  8. SALINE WITH 20 MEQ POTASSIUM CHLORIDE [Concomitant]
  9. ETOPOSIDE [Concomitant]
  10. BLEOMYCIN [Concomitant]
  11. MAGNESIUM SULFATE [Concomitant]

REACTIONS (17)
  - Traumatic lung injury [None]
  - Hypoxia [None]
  - Cardiopulmonary failure [None]
  - Toxicity to various agents [None]
  - Respiratory failure [None]
  - Sepsis [None]
  - Pancytopenia [None]
  - Deep vein thrombosis [None]
  - Large intestine perforation [None]
  - Medical device complication [None]
  - Pulmonary embolism [None]
  - Splenic infarction [None]
  - Renal infarct [None]
  - Pneumothorax [None]
  - Rectal haemorrhage [None]
  - Constipation [None]
  - Procedural complication [None]
